FAERS Safety Report 5388517-7 (Version None)
Quarter: 2007Q3

REPORT INFORMATION
  Report Type: 
  Country: None (occurrence: None)
  Receive Date: 20070716
  Receipt Date: 20061221
  Transmission Date: 20080115
  Serious: Yes (Hospitalization)
  Sender: FDA-Public Use
  Company Number: US-BRISTOL-MYERS SQUIBB COMPANY-13621016

PATIENT
  Age: 93 Year
  Sex: Female
  Weight: 62 kg

DRUGS (5)
  1. CARBIDOPA + LEVODOPA CR TABS 25/100MG [Suspect]
     Indication: PARKINSON'S DISEASE
     Route: 048
     Dates: start: 20020201, end: 20061219
  2. LEVOXYL [Concomitant]
  3. LASIX [Concomitant]
  4. TRIMETHOPRIM [Concomitant]
  5. DEPAKOTE [Concomitant]

REACTIONS (4)
  - AGITATION [None]
  - DELUSION [None]
  - DEPRESSION [None]
  - PARANOIA [None]
